FAERS Safety Report 5919842-6 (Version None)
Quarter: 2008Q4

REPORT INFORMATION
  Report Type: 
  Country: None (occurrence: None)
  Receive Date: 20081015
  Receipt Date: 20081003
  Transmission Date: 20090506
  Serious: Yes (Death)
  Sender: FDA-Public Use
  Company Number: FR-PFIZER INC-2008083771

PATIENT
  Sex: Female
  Weight: 78 kg

DRUGS (1)
  1. SU-011,248 [Suspect]
     Indication: THYROID CANCER
     Dates: start: 20080628, end: 20080905

REACTIONS (1)
  - DEATH [None]
